FAERS Safety Report 4809942-6 (Version None)
Quarter: 2005Q4

REPORT INFORMATION
  Report Type: 
  Country: None (occurrence: None)
  Receive Date: 20051024
  Receipt Date: 20051017
  Transmission Date: 20060501
  Serious: Yes (Other)
  Sender: FDA-Public Use
  Company Number: 2005134992

PATIENT
  Age: 47 Year
  Sex: Female

DRUGS (2)
  1. REACTINE ALLERGY AND SINUS (PSEUDOEPHEDRINE, CETIRIZINE) [Suspect]
     Indication: ILL-DEFINED DISORDER
     Dosage: ORAL
     Route: 048
     Dates: start: 20050701
  2. TENUATE - SLOW RELEASE (AMFEPRAMONE HYDROCHLORIDE) [Concomitant]

REACTIONS (1)
  - DRUG ABUSER [None]
